FAERS Safety Report 5370345-X (Version None)
Quarter: 2007Q2

REPORT INFORMATION
  Report Type: 
  Country: None (occurrence: None)
  Receive Date: 20070626
  Receipt Date: 20070620
  Transmission Date: 20071010
  Serious: Yes (Life-Threatening)
  Sender: FDA-Public Use
  Company Number: FR-BRISTOL-MYERS SQUIBB COMPANY-13823281

PATIENT
  Age: 85 Year
  Sex: Female

DRUGS (6)
  1. PRAVADUAL TABS 81 MG/40 MG [Suspect]
     Dosage: 40MG/81MG TABLET
     Route: 048
     Dates: end: 20070509
  2. CARDENSIEL [Suspect]
     Dates: end: 20070509
  3. TRIATEC [Suspect]
     Dates: end: 20070509
  4. PREVISCAN [Concomitant]
     Dates: end: 20070509
  5. METFORMIN HCL [Concomitant]
     Dates: end: 20070509
  6. LASIX [Concomitant]

REACTIONS (6)
  - ANURIA [None]
  - GRAND MAL CONVULSION [None]
  - HYPERKALAEMIA [None]
  - PULMONARY OEDEMA [None]
  - RENAL FAILURE ACUTE [None]
  - SINOATRIAL BLOCK [None]
